FAERS Safety Report 10550979 (Version 1)
Quarter: 2014Q4

REPORT INFORMATION
  Report Type: Spontaneous
  Country: US (occurrence: None)
  Receive Date: 20141028
  Receipt Date: 20141028
  Transmission Date: 20150529
  Serious: Yes (Hospitalization)
  Sender: FDA-Public Use
  Company Number: None

PATIENT
  Age: 24 Year
  Sex: Female
  Weight: 55.79 kg

DRUGS (1)
  1. HALDOL [Suspect]
     Active Substance: HALOPERIDOL
     Indication: PSYCHOTIC DISORDER
     Dosage: 5MG ( ONE TABLET) BID ORAL
     Route: 048

REACTIONS (6)
  - Dystonia [None]
  - Pain [None]
  - Heart rate increased [None]
  - Posture abnormal [None]
  - Hyperhidrosis [None]
  - Erythema [None]

NARRATIVE: CASE EVENT DATE: 20140801
